FAERS Safety Report 4592260-1 (Version None)
Quarter: 2005Q1

REPORT INFORMATION
  Report Type: 
  Country: None (occurrence: None)
  Receive Date: 20050228
  Receipt Date: 20041109
  Transmission Date: 20050727
  Serious: No
  Sender: FDA-Public Use
  Company Number: US-BRISTOL-MYERS SQUIBB COMPANY-12759932

PATIENT
  Age: 78 Year
  Sex: Female
  Weight: 51 kg

DRUGS (9)
  1. ABILIFY [Suspect]
     Indication: BIPOLAR DISORDER
     Route: 048
     Dates: start: 20040501
  2. AYGESTIN [Concomitant]
  3. KLONOPIN [Concomitant]
  4. MYSOLINE [Concomitant]
  5. LEVOXYL [Concomitant]
  6. LEVSINEX [Concomitant]
  7. PREMARIN [Concomitant]
  8. SLOW FE [Concomitant]
  9. SYNALAR [Concomitant]

REACTIONS (3)
  - DEPRESSION [None]
  - OEDEMA PERIPHERAL [None]
  - PAIN IN EXTREMITY [None]
